FAERS Safety Report 7034303-1 (Version None)
Quarter: 2010Q4

REPORT INFORMATION
  Report Type: 
  Country: None (occurrence: None)
  Receive Date: 20101008
  Receipt Date: 20100929
  Transmission Date: 20110411
  Serious: Yes (Hospitalization, Other)
  Sender: FDA-Public Use
  Company Number: HU-BAYER-201041074GPV

PATIENT
  Age: 50 Year
  Sex: Female
  Weight: 60 kg

DRUGS (3)
  1. BETAFERON [Suspect]
     Indication: MULTIPLE SCLEROSIS
     Route: 058
     Dates: start: 20020101, end: 20100101
  2. IBUPROFEN [Concomitant]
     Indication: ANALGESIC THERAPY
  3. PARAMAX [Concomitant]
     Indication: ANALGESIC THERAPY

REACTIONS (8)
  - INJECTION SITE ERYTHEMA [None]
  - INJECTION SITE INJURY [None]
  - INJECTION SITE NECROSIS [None]
  - INJECTION SITE NODULE [None]
  - INJECTION SITE PAIN [None]
  - INJECTION SITE REACTION [None]
  - INJECTION SITE ULCER [None]
  - VASCULITIS [None]
